FAERS Safety Report 17668450 (Version 2)
Quarter: 2020Q2

REPORT INFORMATION
  Report Type: Report from Study
  Country: None (occurrence: CO)
  Receive Date: 20200414
  Receipt Date: 20200515
  Transmission Date: 20200713
  Serious: Yes (Other)
  Sender: FDA-Public Use
  Company Number: CO-ABBVIE-20K-036-3231264-00

PATIENT
  Age: 65 Year
  Sex: Male
  Weight: 57 kg

DRUGS (2)
  1. HUMIRA [Suspect]
     Active Substance: ADALIMUMAB
     Indication: CROHN^S DISEASE
     Route: 058
     Dates: start: 20170910
  2. HUMIRA [Suspect]
     Active Substance: ADALIMUMAB
     Indication: CROHN^S DISEASE
     Route: 058

REACTIONS (5)
  - Drug ineffective [Unknown]
  - Gastric disorder [Recovered/Resolved]
  - Blister [Unknown]
  - Large intestinal stenosis [Recovering/Resolving]
  - Abdominal pain [Recovered/Resolved]

NARRATIVE: CASE EVENT DATE: 201901
